FAERS Safety Report 23890282 (Version 1)
Quarter: 2024Q2

REPORT INFORMATION
  Report Type: Spontaneous
  Country: US (occurrence: US)
  Receive Date: 20240523
  Receipt Date: 20240523
  Transmission Date: 20240715
  Serious: Yes (Hospitalization)
  Sender: FDA-Public Use
  Company Number: US-SA-SAC20240522001351

PATIENT
  Age: 20 Year
  Sex: Male

DRUGS (5)
  1. ELOCTATE [Suspect]
     Active Substance: EFMOROCTOCOG ALFA
     Indication: Factor VIII deficiency
     Dosage: 1000 U, Q3D (ELOCTATE 1030 UNITS/VIAL, 20 VIALS. INFUSE TWO VIALS (2060 UNITS) INTRAVENOUSLY EVERY 7
     Route: 042
     Dates: start: 20230718
  2. ELOCTATE [Suspect]
     Active Substance: EFMOROCTOCOG ALFA
     Indication: Factor VIII deficiency
     Dosage: 1000 U, Q3D (ELOCTATE 1030 UNITS/VIAL, 20 VIALS. INFUSE TWO VIALS (2060 UNITS) INTRAVENOUSLY EVERY 7
     Route: 042
     Dates: start: 20230718
  3. ELOCTATE [Suspect]
     Active Substance: EFMOROCTOCOG ALFA
     Dosage: 1000 U, PRN (ELOCTATE 4065 UNITS/VIAL, 2 VIALS. INFUSE ONE 4065 UNIT VIAL AND ONE 746 UNIT VIAL (481
     Route: 042
     Dates: start: 20230718
  4. ELOCTATE [Suspect]
     Active Substance: EFMOROCTOCOG ALFA
     Dosage: 1000 U, PRN (ELOCTATE 4065 UNITS/VIAL, 2 VIALS. INFUSE ONE 4065 UNIT VIAL AND ONE 746 UNIT VIAL (481
     Route: 042
     Dates: start: 20230718
  5. SODIUM CHLORIDE [Concomitant]
     Active Substance: SODIUM CHLORIDE
     Dosage: UNK

REACTIONS (2)
  - Haemorrhage [Not Recovered/Not Resolved]
  - Pain [Not Recovered/Not Resolved]

NARRATIVE: CASE EVENT DATE: 20240518
